FAERS Safety Report 6996908-3 (Version None)
Quarter: 2010Q3

REPORT INFORMATION
  Report Type: 
  Country: None (occurrence: None)
  Receive Date: 20100918
  Receipt Date: 20090901
  Transmission Date: 20110219
  Serious: No
  Sender: FDA-Public Use
  Company Number: US-WYE-H10438809

PATIENT
  Sex: Female
  Weight: 72.64 kg

DRUGS (5)
  1. PRISTIQ [Suspect]
     Indication: DEPRESSION
     Route: 048
     Dates: start: 20090715
  2. TRAMADOL [Concomitant]
  3. LEVOTHYROXINE SODIUM [Concomitant]
  4. LOVAZA [Concomitant]
  5. RISPERIDONE [Concomitant]

REACTIONS (2)
  - HEADACHE [None]
  - MIGRAINE [None]
